FAERS Safety Report 4691328-9 (Version None)
Quarter: 2005Q2

REPORT INFORMATION
  Report Type: 
  Country: None (occurrence: None)
  Receive Date: 20050610
  Receipt Date: 20050531
  Transmission Date: 20051028
  Serious: Yes (Other)
  Sender: FDA-Public Use
  Company Number: 2005081860

PATIENT
  Sex: Female
  Weight: 72.5755 kg

DRUGS (9)
  1. CELEBREX [Suspect]
     Indication: BACK DISORDER
     Dosage: 400 MG (200 MG, 2 IN 1 D), ORAL
     Route: 048
  2. ALLOPURINOL [Concomitant]
  3. ASPIRIN [Concomitant]
  4. PRILOSEC [Concomitant]
  5. LANOXIN [Concomitant]
  6. PLAVIX [Concomitant]
  7. NORVASC [Concomitant]
  8. LISINOPRIL [Concomitant]
  9. LIPITOR [Concomitant]

REACTIONS (2)
  - ARTERIAL OCCLUSIVE DISEASE [None]
  - PAIN IN EXTREMITY [None]
